FAERS Safety Report 10410688 (Version 1)
Quarter: 2014Q3

REPORT INFORMATION
  Report Type: Report from Study
  Country: BR (occurrence: BR)
  Receive Date: 20140826
  Receipt Date: 20140826
  Transmission Date: 20150326
  Serious: Yes (Other)
  Sender: FDA-Public Use
  Company Number: BR-ABBVIE-14K-020-1274228-00

PATIENT
  Age: 69 Year
  Sex: Male
  Weight: 94 kg

DRUGS (1)
  1. HUMIRA [Suspect]
     Active Substance: ADALIMUMAB
     Indication: RHEUMATOID ARTHRITIS
     Route: 058
     Dates: start: 2010, end: 201207

REACTIONS (1)
  - Colon neoplasm [Recovered/Resolved]

NARRATIVE: CASE EVENT DATE: 201207
